FAERS Safety Report 24114753 (Version 2)
Quarter: 2024Q3

REPORT INFORMATION
  Report Type: Spontaneous
  Country: QA (occurrence: QA)
  Receive Date: 20240721
  Receipt Date: 20240724
  Transmission Date: 20241017
  Serious: Yes (Life-Threatening, Hospitalization)
  Sender: STRIDES
  Company Number: QA-MLMSERVICE-20240705-PI124185-00030-1

PATIENT
  Age: 41 Year
  Sex: Male

DRUGS (6)
  1. IBUPROFEN [Suspect]
     Active Substance: IBUPROFEN
     Indication: Myalgia
     Dosage: 1 DOSAGE FORM, TOTAL; (TABLET)
     Route: 065
  2. IBUPROFEN [Suspect]
     Active Substance: IBUPROFEN
     Indication: Pain
  3. TOBRAMYCIN [Concomitant]
     Active Substance: TOBRAMYCIN\TOBRAMYCIN SULFATE
     Indication: Ocular hyperaemia
     Dosage: UNK
     Route: 065
  4. TOBRAMYCIN [Concomitant]
     Active Substance: TOBRAMYCIN\TOBRAMYCIN SULFATE
     Indication: Eye pain
  5. TOBRAMYCIN [Concomitant]
     Active Substance: TOBRAMYCIN\TOBRAMYCIN SULFATE
     Indication: Eye discharge
  6. TOBRAMYCIN [Concomitant]
     Active Substance: TOBRAMYCIN\TOBRAMYCIN SULFATE
     Indication: Eye disorder

REACTIONS (6)
  - Hypertransaminasaemia [Recovered/Resolved]
  - Pseudomonal sepsis [Recovered/Resolved]
  - Pericardial effusion [Recovered/Resolved]
  - Acute kidney injury [Recovered/Resolved]
  - Leukopenia [Recovered/Resolved]
  - Toxic epidermal necrolysis [Recovered/Resolved]
